FAERS Safety Report 12909060 (Version 1)
Quarter: 2016Q4

REPORT INFORMATION
  Report Type: Spontaneous
  Country: US (occurrence: US)
  Receive Date: 20161103
  Receipt Date: 20161103
  Transmission Date: 20170207
  Serious: No
  Sender: FDA-Public Use
  Company Number: US-JAZZ-2016-US-016806

PATIENT
  Sex: Female

DRUGS (20)
  1. METAXALONE. [Concomitant]
     Active Substance: METAXALONE
  2. CITALOPRAM [Concomitant]
     Active Substance: CITALOPRAM HYDROBROMIDE
  3. IBUPROFEN. [Concomitant]
     Active Substance: IBUPROFEN
  4. TYLENOL EXTRA STRENGTH [Concomitant]
     Active Substance: ACETAMINOPHEN
  5. XYREM [Suspect]
     Active Substance: SODIUM OXYBATE
     Indication: NARCOLEPSY
     Dosage: 2.25 G, BID
     Route: 048
     Dates: start: 201503, end: 201503
  6. TRIAMCINOLONE [Concomitant]
     Active Substance: TRIAMCINOLONE
  7. EVAMIST [Concomitant]
     Active Substance: ESTRADIOL
  8. ADVAIR HFA [Concomitant]
     Active Substance: FLUTICASONE PROPIONATE\SALMETEROL XINAFOATE
  9. XYREM [Suspect]
     Active Substance: SODIUM OXYBATE
     Indication: CATAPLEXY
     Dosage: 3 G, BID
     Route: 048
     Dates: start: 201503, end: 201503
  10. GLYCOPYRROLATE. [Concomitant]
     Active Substance: GLYCOPYRROLATE
  11. MAGNESIUM OXIDE. [Concomitant]
     Active Substance: MAGNESIUM OXIDE
  12. CLOBETASOL [Concomitant]
     Active Substance: CLOBETASOL
  13. ALBUTEROL SULFATE HFA [Concomitant]
     Active Substance: ALBUTEROL SULFATE
  14. KETOCONAZOLE. [Concomitant]
     Active Substance: KETOCONAZOLE
  15. CETIRIZINE HCL [Concomitant]
     Active Substance: CETIRIZINE HYDROCHLORIDE
  16. ADDERALL [Concomitant]
     Active Substance: AMPHETAMINE ASPARTATE\AMPHETAMINE SULFATE\DEXTROAMPHETAMINE SACCHARATE\DEXTROAMPHETAMINE SULFATE
  17. ADDERALL XR [Concomitant]
     Active Substance: AMPHETAMINE ASPARTATE\AMPHETAMINE SULFATE\DEXTROAMPHETAMINE SACCHARATE\DEXTROAMPHETAMINE SULFATE
  18. NAPHAZOLINE [Concomitant]
     Active Substance: NAPHAZOLINE\NAPHAZOLINE HYDROCHLORIDE
  19. OMEPRAZOLE. [Concomitant]
     Active Substance: OMEPRAZOLE
  20. XYREM [Suspect]
     Active Substance: SODIUM OXYBATE
     Dosage: 4.5 G, BID
     Route: 048
     Dates: start: 201503

REACTIONS (1)
  - Intervertebral disc protrusion [Unknown]
